FAERS Safety Report 9732681 (Version 2)
Quarter: 2013Q4

REPORT INFORMATION
  Report Type: Spontaneous
  Country: US (occurrence: US)
  Receive Date: 20131205
  Receipt Date: 20131205
  Transmission Date: 20140711
  Serious: No
  Sender: FDA-Public Use
  Company Number: US-TEVA-443927USA

PATIENT
  Sex: 0

DRUGS (2)
  1. AZILECT [Suspect]
     Indication: PARKINSON^S DISEASE
     Route: 048
  2. SELECTIVE SEROTONIN REUPTAKE INHIBITORS [Concomitant]

REACTIONS (1)
  - Off label use [Not Recovered/Not Resolved]
